FAERS Safety Report 18309398 (Version 8)
Quarter: 2023Q1

REPORT INFORMATION
  Report Type: Spontaneous
  Country: US (occurrence: US)
  Receive Date: 20200924
  Receipt Date: 20230301
  Transmission Date: 20230417
  Serious: No
  Sender: FDA-Public Use
  Company Number: US-PFIZER INC-2020363111

PATIENT
  Age: 74 Year
  Sex: Female
  Weight: 68 kg

DRUGS (5)
  1. IBRANCE [Suspect]
     Active Substance: PALBOCICLIB
     Indication: Breast cancer metastatic
     Dosage: 100 MG, CYCLIC (100MG, 1 TABLET BY MOUTH FOR 21 DAYS AND OFF 7DAYS)
     Route: 048
  2. IBRANCE [Suspect]
     Active Substance: PALBOCICLIB
     Indication: Breast cancer female
     Dosage: 100 MG
     Route: 048
  3. LETROZOLE [Suspect]
     Active Substance: LETROZOLE
     Indication: Breast cancer metastatic
     Dosage: 2.5 MG, CYCLIC (1 TABLET BY MOUTH FOR 28 DAYS)
     Route: 048
     Dates: start: 2016
  4. GABAPENTIN [Concomitant]
     Active Substance: GABAPENTIN
     Dosage: UNK
  5. PANTOPRAZOLE [Concomitant]
     Active Substance: PANTOPRAZOLE
     Indication: Gastrooesophageal reflux disease
     Dosage: UNK

REACTIONS (14)
  - Infection [Not Recovered/Not Resolved]
  - Ear discomfort [Unknown]
  - Stomatitis [Unknown]
  - Sensory disturbance [Unknown]
  - Paraesthesia [Unknown]
  - Spondylitis [Unknown]
  - Swelling [Unknown]
  - Gingival swelling [Unknown]
  - Ear swelling [Unknown]
  - Swelling face [Unknown]
  - Tenderness [Unknown]
  - Lymphadenopathy [Unknown]
  - Tumour marker abnormal [Unknown]
  - Neoplasm progression [Unknown]

NARRATIVE: CASE EVENT DATE: 20200101
